FAERS Safety Report 13426951 (Version 1)
Quarter: 2017Q2

REPORT INFORMATION
  Report Type: Report from Study
  Country: FR (occurrence: FR)
  Receive Date: 20170411
  Receipt Date: 20170411
  Transmission Date: 20170830
  Serious: Yes (Hospitalization, Other)
  Sender: FDA-Public Use
  Company Number: FR-CELGENEUS-FRA-20170400309

PATIENT

DRUGS (1)
  1. REVLIMID [Suspect]
     Active Substance: LENALIDOMIDE
     Indication: PLASMA CELL MYELOMA
     Dosage: 15-25 MILLIGRAM
     Route: 048

REACTIONS (14)
  - Spinal cord compression [Unknown]
  - Obesity [Unknown]
  - Hypergammaglobulinaemia benign monoclonal [Unknown]
  - Diabetes mellitus [Unknown]
  - Peptic ulcer [Unknown]
  - Hypertension [Unknown]
  - Chronic kidney disease [Unknown]
  - Infection [Unknown]
  - Chronic obstructive pulmonary disease [Unknown]
  - Anxiety [Unknown]
  - Depression [Unknown]
  - Cardiovascular disorder [Unknown]
  - Hyperlipidaemia [Unknown]
  - Plasma cell myeloma [Unknown]
